FAERS Safety Report 14382678 (Version 2)
Quarter: 2018Q1

REPORT INFORMATION
  Report Type: Report from Study
  Country: US (occurrence: US)
  Receive Date: 20180112
  Receipt Date: 20180308
  Transmission Date: 20180509
  Serious: Yes (Other)
  Sender: FDA-Public Use
  Company Number: PHEH2018US001762

PATIENT
  Age: 64 Year
  Sex: Female

DRUGS (2)
  1. COSENTYX [Suspect]
     Active Substance: SECUKINUMAB
     Indication: PSORIATIC ARTHROPATHY
     Dosage: 300 MG, QMO
     Route: 058
     Dates: start: 20170901
  2. COSENTYX [Suspect]
     Active Substance: SECUKINUMAB
     Indication: PSORIASIS
     Dosage: 150 MG, QMO
     Route: 058

REACTIONS (9)
  - Autoimmune disorder [Unknown]
  - Swelling [Unknown]
  - Fibromyalgia [Unknown]
  - Skin haemorrhage [Unknown]
  - Skin lesion [Unknown]
  - Inappropriate schedule of drug administration [Unknown]
  - Myofascial pain syndrome [Unknown]
  - Musculoskeletal stiffness [Unknown]
  - Restless legs syndrome [Unknown]

NARRATIVE: CASE EVENT DATE: 20170901
